FAERS Safety Report 6973194-1 (Version None)
Quarter: 2010Q3

REPORT INFORMATION
  Report Type: 
  Country: None (occurrence: None)
  Receive Date: 20100909
  Receipt Date: 20100903
  Transmission Date: 20110219
  Serious: Yes (Other)
  Sender: FDA-Public Use
  Company Number: JP-ROCHE-723032

PATIENT

DRUGS (4)
  1. RIVOTRIL [Suspect]
     Indication: STATUS EPILEPTICUS
     Route: 048
  2. RIVOTRIL [Suspect]
     Dosage: REDUCED TO 3 MG OVER 2 WEEKS FOLLOWED BY 0 MG OVER NEXT 2 WEEKS
     Route: 048
  3. RIVOTRIL [Suspect]
     Route: 048
  4. DEPAS [Concomitant]
     Dosage: PER ORAL AGENT. DOSAGE IS UNCERTAIN
     Route: 048

REACTIONS (2)
  - SOMNOLENCE [None]
  - STATUS EPILEPTICUS [None]
